FAERS Safety Report 21803119 (Version 3)
Quarter: 2025Q1

REPORT INFORMATION
  Report Type: Spontaneous
  Country: US (occurrence: US)
  Receive Date: 20221231
  Receipt Date: 20250218
  Transmission Date: 20250408
  Serious: No
  Sender: MERZ
  Company Number: US-ACORDA-ACO_174233_2022

PATIENT
  Age: 63 Year
  Sex: Female

DRUGS (4)
  1. INBRIJA [Suspect]
     Active Substance: LEVODOPA
     Indication: Parkinson^s disease
     Dates: start: 20210422
  2. INBRIJA [Suspect]
     Active Substance: LEVODOPA
     Indication: On and off phenomenon
     Dates: start: 20210422
  3. CARBIDOPA\LEVODOPA [Concomitant]
     Active Substance: CARBIDOPA\LEVODOPA
     Indication: Product used for unknown indication
     Route: 065
  4. APOKYN [Concomitant]
     Active Substance: APOMORPHINE HYDROCHLORIDE
     Indication: Product used for unknown indication
     Route: 065

REACTIONS (15)
  - Incorrect route of product administration [Unknown]
  - Nasal dryness [Unknown]
  - Compulsions [Unknown]
  - Binge eating [Unknown]
  - Dry throat [Unknown]
  - Nasal congestion [Unknown]
  - Dizziness postural [Unknown]
  - Dizziness [Unknown]
  - Dyspnoea [Unknown]
  - Dysphonia [Unknown]
  - Saliva discolouration [Unknown]
  - Hyperhidrosis [Not Recovered/Not Resolved]
  - Headache [Unknown]
  - Disorientation [Not Recovered/Not Resolved]
  - Cough [Not Recovered/Not Resolved]

NARRATIVE: CASE EVENT DATE: 20221216
